FAERS Safety Report 10592297 (Version 1)
Quarter: 2014Q4

REPORT INFORMATION
  Report Type: Spontaneous
  Country: GB (occurrence: None)
  Receive Date: 20141117
  Receipt Date: 20141117
  Transmission Date: 20150529
  Serious: Yes (Hospitalization)
  Sender: FDA-Public Use
  Company Number: FK201405120

PATIENT
  Age: 68 Year
  Sex: Female
  Weight: 63 kg

DRUGS (12)
  1. OXALIPLATIN. [Suspect]
     Active Substance: OXALIPLATIN
     Indication: OESOPHAGEAL CARCINOMA
     Dosage: 210 MG, INTRAVENOUS (NOT OTHERWISE SPECIFIED)?
     Route: 042
     Dates: start: 20140923, end: 20140923
  2. CAPECITABINE (CAPECITABINE) [Concomitant]
  3. EPIRUBICIN (EPIRUBICIN) [Concomitant]
  4. ESOMEPRAZOLE (ESOMEPRAZOLE) [Concomitant]
     Active Substance: ESOMEPRAZOLE
  5. LEVOTHYROXINE (LEVOTHYROXINE) [Concomitant]
     Active Substance: LEVOTHYROXINE
  6. LOPERAMIDE (LOPERAMIDE) [Concomitant]
     Active Substance: LOPERAMIDE
  7. ORAMORPH (MORPHINE SULFATE PENTAHYDRATE) [Concomitant]
  8. ZOLPIDEM (ZOLPIDEM) [Concomitant]
     Active Substance: ZOLPIDEM TARTRATE
  9. FENTANYL (FENTANYL) [Concomitant]
     Active Substance: FENTANYL
  10. CYCLIZINE (CYCLIZINE) [Concomitant]
  11. NORTRIPTYLINE (NORTRIPTYLINE) [Concomitant]
     Active Substance: NORTRIPTYLINE
  12. PARACETAMOL (PARACETAMOL) [Concomitant]
     Active Substance: ACETAMINOPHEN

REACTIONS (6)
  - Dysphagia [None]
  - Laryngospasm [None]
  - Dysaesthesia pharynx [None]
  - Tachycardia [None]
  - Dyspnoea [None]
  - Hypertension [None]

NARRATIVE: CASE EVENT DATE: 20140923
